FAERS Safety Report 10561173 (Version 1)
Quarter: 2014Q4

REPORT INFORMATION
  Report Type: Spontaneous
  Country: US (occurrence: US)
  Receive Date: 20141103
  Receipt Date: 20141103
  Transmission Date: 20150529
  Serious: Yes (Hospitalization, Other)
  Sender: FDA-Public Use
  Company Number: US-GLAXOSMITHKLINE-US2014010428

PATIENT
  Age: 67 Year
  Sex: Male

DRUGS (6)
  1. PLAVIX [Concomitant]
     Active Substance: CLOPIDOGREL BISULFATE
  2. UNSPECIFIED MEDICATION [Concomitant]
     Active Substance: UNSPECIFIED INGREDIENT
  3. LASIX [Concomitant]
     Active Substance: FUROSEMIDE
  4. LIPITOR [Concomitant]
     Active Substance: ATORVASTATIN CALCIUM
  5. COREG CR [Suspect]
     Active Substance: CARVEDILOL PHOSPHATE
     Indication: BLOOD PRESSURE ABNORMAL
  6. COREG [Suspect]
     Active Substance: CARVEDILOL
     Indication: PRODUCT USED FOR UNKNOWN INDICATION
     Dosage: 3.125 MG, BID

REACTIONS (17)
  - Arterial therapeutic procedure [Recovering/Resolving]
  - Post procedural complication [Recovering/Resolving]
  - Peripheral swelling [Recovering/Resolving]
  - Weight decreased [Not Recovered/Not Resolved]
  - Abasia [Recovering/Resolving]
  - Femoral artery occlusion [Recovering/Resolving]
  - Peritonitis [Recovering/Resolving]
  - Anaemia [Recovering/Resolving]
  - Groin pain [Recovering/Resolving]
  - Malaise [Unknown]
  - Large intestine perforation [Recovering/Resolving]
  - Colon operation [Recovered/Resolved]
  - Apparent death [Unknown]
  - Pain in extremity [Recovering/Resolving]
  - Rehabilitation therapy [Unknown]
  - Haemorrhage [Recovering/Resolving]
  - Cardiac failure congestive [Recovering/Resolving]

NARRATIVE: CASE EVENT DATE: 2014
